FAERS Safety Report 9614608 (Version 1)
Quarter: 2013Q4

REPORT INFORMATION
  Report Type: Spontaneous
  Country: US (occurrence: None)
  Receive Date: 20131009
  Receipt Date: 20131009
  Transmission Date: 20140711
  Serious: No
  Sender: FDA-Public Use
  Company Number: None

PATIENT
  Age: 62 Year
  Sex: Female
  Weight: 98.88 kg

DRUGS (1)
  1. FENOFIBRATE [Suspect]
     Route: 048
     Dates: start: 20130924, end: 20130930

REACTIONS (2)
  - Dizziness [None]
  - Nausea [None]
